FAERS Safety Report 16025532 (Version 2)
Quarter: 2019Q1

REPORT INFORMATION
  Report Type: Report from Study
  Country: None (occurrence: IL)
  Receive Date: 20190302
  Receipt Date: 20190307
  Transmission Date: 20190418
  Serious: Yes (Other)
  Sender: FDA-Public Use
  Company Number: IL-ABBVIE-19K-082-2680827-00

PATIENT
  Age: 28 Year
  Sex: Female
  Weight: 54 kg

DRUGS (4)
  1. HUMIRA [Suspect]
     Active Substance: ADALIMUMAB
     Route: 058
     Dates: start: 2009, end: 2011
  2. HUMIRA [Suspect]
     Active Substance: ADALIMUMAB
     Indication: CROHN^S DISEASE
     Dosage: LOADING DOSE
     Route: 058
     Dates: start: 20190224, end: 20190224
  3. HUMIRA [Suspect]
     Active Substance: ADALIMUMAB
     Indication: CROHN^S DISEASE
     Route: 058
     Dates: start: 20090101, end: 2009
  4. HUMIRA [Suspect]
     Active Substance: ADALIMUMAB
     Dosage: LOADING DOSE
     Route: 058
     Dates: start: 20190305

REACTIONS (23)
  - Gastrointestinal wall thickening [Unknown]
  - Diarrhoea [Unknown]
  - Weight decreased [Unknown]
  - C-reactive protein increased [Unknown]
  - Device leakage [Unknown]
  - Asthenia [Recovering/Resolving]
  - Haemoglobin increased [Unknown]
  - Abdominal pain [Unknown]
  - Crohn^s disease [Unknown]
  - Gastrointestinal oedema [Unknown]
  - Intestinal fistula [Unknown]
  - Intra-abdominal fluid collection [Unknown]
  - Frequent bowel movements [Unknown]
  - Hypotension [Unknown]
  - Vascular occlusion [Unknown]
  - Iron deficiency anaemia [Recovering/Resolving]
  - Lymphadenopathy [Unknown]
  - Stress [Unknown]
  - Rash generalised [Recovered/Resolved]
  - Drug ineffective [Unknown]
  - Pelvic fluid collection [Unknown]
  - Injection site pain [Recovering/Resolving]
  - Injection site erythema [Not Recovered/Not Resolved]

NARRATIVE: CASE EVENT DATE: 2009
